FAERS Safety Report 5076364-5 (Version None)
Quarter: 2006Q3

REPORT INFORMATION
  Report Type: 
  Country: None (occurrence: None)
  Receive Date: 20060807
  Receipt Date: 20060731
  Transmission Date: 20061208
  Serious: Yes (Other)
  Sender: FDA-Public Use
  Company Number: CHNY2006BR02187

PATIENT
  Age: 63 Year
  Sex: Female

DRUGS (1)
  1. TRIMEDAL (NCH (VITAMIN C, TROXERUTIN, ACETAMINOPHEN (PARACETAMOL), PHE [Suspect]
     Indication: INFLUENZA
     Dosage: 500 MG; SEE IMAGE
     Dates: end: 20060726

REACTIONS (2)
  - DRUG INEFFECTIVE [None]
  - INFLUENZA [None]
